FAERS Safety Report 19235592 (Version 2)
Quarter: 2021Q2

REPORT INFORMATION
  Report Type: Spontaneous
  Country: US (occurrence: US)
  Receive Date: 20210510
  Receipt Date: 20210621
  Transmission Date: 20210717
  Serious: Yes (Disabling, Other)
  Sender: FDA-Public Use
  Company Number: US-AMGEN-USASP2021070474

PATIENT
  Sex: Female

DRUGS (1)
  1. ENBREL [Suspect]
     Active Substance: ETANERCEPT
     Indication: PRODUCT USED FOR UNKNOWN INDICATION
     Dosage: UNK
     Route: 065

REACTIONS (6)
  - Neuropathy peripheral [Unknown]
  - Fibromyalgia [Unknown]
  - Intervertebral disc displacement [Unknown]
  - Fall [Unknown]
  - Psoriatic arthropathy [Unknown]
  - Intervertebral disc injury [Unknown]

NARRATIVE: CASE EVENT DATE: 2009
